FAERS Safety Report 5012427-8 (Version None)
Quarter: 2006Q2

REPORT INFORMATION
  Report Type: 
  Country: None (occurrence: None)
  Receive Date: 20060411
  Receipt Date: 20051227
  Transmission Date: 20061013
  Serious: No
  Sender: FDA-Public Use
  Company Number: 2005S1000274

PATIENT
  Age: 69 Year
  Sex: Female
  Weight: 77.3 kg

DRUGS (12)
  1. CUBICIN [Suspect]
     Indication: CELLULITIS
     Dosage: 320 MG;Q24H;IV
     Route: 042
     Dates: start: 20051216, end: 20051225
  2. CUBICIN [Suspect]
     Indication: STAPHYLOCOCCAL INFECTION
     Dosage: 320 MG;Q24H;IV
     Route: 042
     Dates: start: 20051216, end: 20051225
  3. FAMOTIDINE [Concomitant]
  4. ATENOLOL [Concomitant]
  5. LOVENOX [Concomitant]
  6. LISINOPRIL [Concomitant]
  7. HYDROCHLOROTHIAZIDE [Concomitant]
  8. FOLIC ACID [Concomitant]
  9. MORPHINE [Concomitant]
  10. GENTAMICIN [Concomitant]
  11. VANCOMYCIN [Concomitant]
  12. CEFTRIAXONE [Concomitant]

REACTIONS (2)
  - ATRIAL FLUTTER [None]
  - ATRIOVENTRICULAR BLOCK [None]
